FAERS Safety Report 26038921 (Version 1)
Quarter: 2025Q4

REPORT INFORMATION
  Report Type: Spontaneous
  Country: TH (occurrence: TH)
  Receive Date: 20251113
  Receipt Date: 20251113
  Transmission Date: 20260117
  Serious: Yes (Other)
  Sender: UNICHEM
  Company Number: TH-UNICHEM LABORATORIES LIMITED-UNI-2025-TH-003691

PATIENT

DRUGS (7)
  1. QUETIAPINE [Suspect]
     Active Substance: QUETIAPINE
     Indication: Bipolar I disorder
     Dosage: 800 MILLIGRAM, QD
     Route: 065
  2. QUETIAPINE [Suspect]
     Active Substance: QUETIAPINE
     Indication: Mania
     Dosage: 400 MILLIGRAM, QD
     Route: 065
  3. QUETIAPINE [Suspect]
     Active Substance: QUETIAPINE
     Dosage: 550 MILLIGRAM, QD
     Route: 065
  4. VALPROATE SODIUM [Concomitant]
     Active Substance: VALPROATE SODIUM
     Indication: Bipolar I disorder
     Dosage: 2000 UNK, QD
     Route: 065
  5. VALPROATE SODIUM [Concomitant]
     Active Substance: VALPROATE SODIUM
     Indication: Mania
     Dosage: 1000 UNK, QD
     Route: 065
  6. TRIEXYPHENIDYL [Concomitant]
     Indication: Bipolar I disorder
     Dosage: 2 MILLIGRAM, QD
     Route: 065
  7. TRIEXYPHENIDYL [Concomitant]
     Indication: Mania

REACTIONS (1)
  - Colitis ischaemic [Unknown]
